FAERS Safety Report 9377384 (Version 2)
Quarter: 2013Q4

REPORT INFORMATION
  Report Type: Spontaneous
  Country: JP (occurrence: JP)
  Receive Date: 20130701
  Receipt Date: 20131003
  Transmission Date: 20140711
  Serious: Yes (Other)
  Sender: FDA-Public Use
  Company Number: JP-PFIZER INC-2013190398

PATIENT
  Age: 6 Decade
  Sex: Male

DRUGS (3)
  1. LYRICA [Suspect]
     Dosage: UNK
     Route: 048
  2. CYMBALTA [Suspect]
     Dosage: UNK
  3. FENTANYL CITRATE [Concomitant]
     Dosage: UNK

REACTIONS (1)
  - Neuroleptic malignant syndrome [Recovered/Resolved]
